FAERS Safety Report 12486752 (Version 4)
Quarter: 2017Q2

REPORT INFORMATION
  Report Type: Spontaneous
  Country: US (occurrence: US)
  Receive Date: 20160621
  Receipt Date: 20170616
  Transmission Date: 20170830
  Serious: No
  Sender: FDA-Public Use
  Company Number: US-ALLERGAN-1655944US

PATIENT
  Age: 48 Year
  Sex: Female

DRUGS (2)
  1. LILETTA [Suspect]
     Active Substance: LEVONORGESTREL
     Indication: UTERINE LEIOMYOMA
     Dosage: 52 MG
     Route: 015
     Dates: start: 20160421, end: 20160421
  2. LILETTA [Suspect]
     Active Substance: LEVONORGESTREL
     Indication: HAEMORRHAGE

REACTIONS (2)
  - Procedural pain [Unknown]
  - Off label use [Unknown]

NARRATIVE: CASE EVENT DATE: 20160421
